FAERS Safety Report 9611236 (Version 2)
Quarter: 2013Q4

REPORT INFORMATION
  Report Type: Spontaneous
  Country: US (occurrence: US)
  Receive Date: 20131010
  Receipt Date: 20131028
  Transmission Date: 20140711
  Serious: No
  Sender: FDA-Public Use
  Company Number: US-009507513-1310USA003598

PATIENT
  Age: 58 Year
  Sex: Female

DRUGS (1)
  1. OXYTROL [Suspect]
     Dosage: UNK

REACTIONS (1)
  - Drug ineffective [Unknown]
